FAERS Safety Report 8383446-9 (Version None)
Quarter: 2012Q2

REPORT INFORMATION
  Report Type: 
  Country: None (occurrence: None)
  Receive Date: 20120524
  Receipt Date: 20120430
  Transmission Date: 20120825
  Serious: Yes (Other)
  Sender: FDA-Public Use
  Company Number: PHHY2012JP037421

PATIENT
  Age: 69 Year

DRUGS (5)
  1. ADRIAMYCIN PFS [Concomitant]
  2. ITRACONAZOLE [Suspect]
  3. VINCRISTINE [Interacting]
     Indication: B-CELL LYMPHOMA
  4. PREDNISONE [Concomitant]
  5. CYTOXAN [Concomitant]

REACTIONS (2)
  - DRUG INTERACTION [None]
  - ILEUS PARALYTIC [None]
